FAERS Safety Report 5302736-7 (Version None)
Quarter: 2007Q2

REPORT INFORMATION
  Report Type: 
  Country: None (occurrence: None)
  Receive Date: 20070419
  Receipt Date: 20070409
  Transmission Date: 20071010
  Serious: Yes (Other)
  Sender: FDA-Public Use
  Company Number: US-PFIZER INC-2007029435

PATIENT
  Sex: Female
  Weight: 56.7 kg

DRUGS (5)
  1. LIPITOR [Suspect]
     Indication: BLOOD CHOLESTEROL INCREASED
  2. ZETIA [Concomitant]
  3. COREG [Concomitant]
  4. DYAZIDE [Concomitant]
  5. PREVACID [Concomitant]

REACTIONS (3)
  - ALOPECIA [None]
  - MACULAR DEGENERATION [None]
  - MUSCLE DISORDER [None]
